FAERS Safety Report 5374317-0 (Version None)
Quarter: 2007Q2

REPORT INFORMATION
  Report Type: 
  Country: None (occurrence: None)
  Receive Date: 20070629
  Receipt Date: 20070621
  Transmission Date: 20071010
  Serious: Yes (Hospitalization, Other)
  Sender: FDA-Public Use
  Company Number: PHBS2007IT10726

PATIENT
  Age: 54 Year
  Sex: Male

DRUGS (1)
  1. ZOMETA [Suspect]
     Indication: METASTASES TO BONE
     Dosage: 4 MG, UNK
     Route: 042
     Dates: start: 20050401

REACTIONS (7)
  - BONE DISORDER [None]
  - FISTULA [None]
  - LUNG NEOPLASM MALIGNANT [None]
  - ORAL MUCOSAL DISORDER [None]
  - OSTEONECROSIS [None]
  - RECTAL CANCER [None]
  - TOOTH EXTRACTION [None]
